FAERS Safety Report 5053170-9 (Version None)
Quarter: 2006Q3

REPORT INFORMATION
  Report Type: 
  Country: None (occurrence: None)
  Receive Date: 20060717
  Receipt Date: 20060710
  Transmission Date: 20061208
  Serious: Yes (Life-Threatening)
  Sender: FDA-Public Use
  Company Number: FR-MERCK-0607FRA00015

PATIENT
  Age: 70 Year
  Sex: Female

DRUGS (6)
  1. MEFOXIN [Suspect]
     Indication: INFECTION PROPHYLAXIS
     Route: 042
     Dates: start: 20051011, end: 20051011
  2. SUCCINYLCHOLINE IODIDE [Suspect]
     Indication: GENERAL ANAESTHESIA
     Route: 042
     Dates: start: 20051011, end: 20051011
  3. PROPOFOL [Suspect]
     Indication: GENERAL ANAESTHESIA
     Route: 042
     Dates: start: 20051011, end: 20051011
  4. CISATRACURIUM BESYLATE [Suspect]
     Indication: GENERAL ANAESTHESIA
     Route: 042
     Dates: start: 20051011, end: 20051011
  5. SUFENTANIL CITRATE [Suspect]
     Indication: GENERAL ANAESTHESIA
     Route: 042
     Dates: start: 20051011, end: 20051011
  6. NEFOPAM HYDROCHLORIDE [Suspect]
     Route: 051
     Dates: start: 20051011, end: 20051011

REACTIONS (3)
  - BRONCHOSPASM [None]
  - HYPOTENSION [None]
  - RASH [None]
